FAERS Safety Report 5282941-9 (Version None)
Quarter: 2007Q1

REPORT INFORMATION
  Report Type: 
  Country: None (occurrence: None)
  Receive Date: 20070328
  Receipt Date: 20070328
  Transmission Date: 20070707
  Serious: Yes (Other)
  Sender: FDA-Public Use
  Company Number: None

PATIENT
  Age: 67 Year
  Sex: Male
  Weight: 93 kg

DRUGS (8)
  1. CHOLINE SALICYLATE/MAGNESIUM SULFATE [Suspect]
  2. VERAPAMIL HCL [Concomitant]
  3. FINASTERIDE [Concomitant]
  4. TERAZOSIN HCL [Concomitant]
  5. SIMVASTATIN [Concomitant]
  6. CAPSAICIN [Concomitant]
  7. CHOLINE MG TRISALICYLATE [Concomitant]
  8. ALBUTEROL / IPRATROP [Concomitant]

REACTIONS (3)
  - HEADACHE [None]
  - NAUSEA [None]
  - VOMITING [None]
